FAERS Safety Report 8334907-X (Version None)
Quarter: 2012Q2

REPORT INFORMATION
  Report Type: 
  Country: None (occurrence: None)
  Receive Date: 20120503
  Receipt Date: 20120419
  Transmission Date: 20120825
  Serious: Yes (Other)
  Sender: FDA-Public Use
  Company Number: CH-JNJFOC-20120413759

PATIENT
  Age: 46 Year
  Sex: Female

DRUGS (2)
  1. IBUPROFEN TABLETS [Concomitant]
     Indication: PRODUCT USED FOR UNKNOWN INDICATION
     Route: 048
  2. PALEXIA [Suspect]
     Indication: PAIN
     Route: 048
     Dates: start: 20120210, end: 20120210

REACTIONS (4)
  - HYPERTENSION [None]
  - DYSPNOEA [None]
  - VERTIGO [None]
  - NAUSEA [None]
